FAERS Safety Report 25597032 (Version 2)
Quarter: 2025Q3

REPORT INFORMATION
  Report Type: Spontaneous
  Country: EU (occurrence: EU)
  Receive Date: 20250723
  Receipt Date: 20250814
  Transmission Date: 20251021
  Serious: Yes (Other)
  Sender: TEVA
  Company Number: EU-TEVA-VS-3353367

PATIENT
  Age: 63 Year
  Sex: Female

DRUGS (12)
  1. DULOXETINE [Suspect]
     Active Substance: DULOXETINE
     Indication: Depression
     Route: 065
  2. DULOXETINE [Suspect]
     Active Substance: DULOXETINE
     Indication: Depression
     Route: 065
     Dates: start: 2021
  3. DULOXETINE [Suspect]
     Active Substance: DULOXETINE
     Indication: Depression
     Route: 065
     Dates: start: 2021
  4. DULOXETINE [Suspect]
     Active Substance: DULOXETINE
     Indication: Depression
     Route: 065
  5. DULOXETINE [Suspect]
     Active Substance: DULOXETINE
     Indication: Depression
     Route: 065
     Dates: start: 2021
  6. ALPRAZOLAM [Suspect]
     Active Substance: ALPRAZOLAM
     Indication: Depression
     Dosage: RECEIVED 12 DROPS TWICE A DAY
     Route: 065
     Dates: start: 202204, end: 2022
  7. PAROXETINE [Suspect]
     Active Substance: PAROXETINE
     Indication: Depression
     Route: 065
     Dates: start: 202204, end: 2022
  8. ARIPIPRAZOLE [Suspect]
     Active Substance: ARIPIPRAZOLE
     Indication: Depression
     Route: 065
  9. LORAZEPAM [Suspect]
     Active Substance: LORAZEPAM
     Indication: Depression
     Route: 065
     Dates: start: 2021
  10. PREGABALIN [Suspect]
     Active Substance: PREGABALIN
     Indication: Depression
     Route: 065
     Dates: start: 2021
  11. PREGABALIN [Suspect]
     Active Substance: PREGABALIN
     Indication: Depression
     Route: 065
     Dates: start: 2021
  12. PREGABALIN [Suspect]
     Active Substance: PREGABALIN
     Indication: Depression
     Route: 065

REACTIONS (3)
  - Weight increased [Recovering/Resolving]
  - Treatment noncompliance [Unknown]
  - Sedation complication [Unknown]

NARRATIVE: CASE EVENT DATE: 20210101
